FAERS Safety Report 18174102 (Version 3)
Quarter: 2023Q1

REPORT INFORMATION
  Report Type: Spontaneous
  Country: JP (occurrence: JP)
  Receive Date: 20200820
  Receipt Date: 20230112
  Transmission Date: 20230418
  Serious: Yes (Hospitalization, Other)
  Sender: FDA-Public Use
  Company Number: JP-CELLTRION INC.-2020JP025418

PATIENT

DRUGS (11)
  1. TRASTUZUMAB [Suspect]
     Active Substance: TRASTUZUMAB
     Indication: Breast cancer
     Dosage: 320 MG X 12 TIMES
     Route: 042
     Dates: start: 20190718, end: 20200312
  2. SINGULAIR [Concomitant]
     Active Substance: MONTELUKAST SODIUM
     Indication: Product used for unknown indication
     Dosage: UNK
  3. PROCATEROL HYDROCHLORIDE [Concomitant]
     Active Substance: PROCATEROL HYDROCHLORIDE
     Indication: Product used for unknown indication
     Dosage: UNK
  4. PRANOPROFEN [Concomitant]
     Active Substance: PRANOPROFEN
     Indication: Product used for unknown indication
     Dosage: UNK
  5. ASTOMIN [Concomitant]
     Indication: Product used for unknown indication
     Dosage: UNK
  6. AMBROXOL HYDROCHLORIDE [Concomitant]
     Active Substance: AMBROXOL HYDROCHLORIDE
     Indication: Product used for unknown indication
     Dosage: UNK
  7. CELESTAMINE [BETAMETHASONE;LORATADINE] [Concomitant]
     Indication: Product used for unknown indication
     Dosage: UNK
  8. AZULENE [Concomitant]
     Active Substance: AZULENE
     Indication: Product used for unknown indication
     Dosage: UNK
  9. FLUTICASONE FUROATE\VILANTEROL TRIFENATATE [Concomitant]
     Active Substance: FLUTICASONE FUROATE\VILANTEROL TRIFENATATE
     Indication: Product used for unknown indication
     Dosage: UNK
  10. TULOBUTEROL [Concomitant]
     Active Substance: TULOBUTEROL
     Indication: Product used for unknown indication
     Dosage: UNK
  11. FLUTICASONE PROPIONATE\SALMETEROL XINAFOATE [Concomitant]
     Active Substance: FLUTICASONE PROPIONATE\SALMETEROL XINAFOATE
     Indication: Product used for unknown indication
     Dosage: UNK

REACTIONS (3)
  - Cardiac failure [Recovering/Resolving]
  - Pleural effusion [Unknown]
  - Underdose [Unknown]

NARRATIVE: CASE EVENT DATE: 20200525
